FAERS Safety Report 15792562 (Version 1)
Quarter: 2019Q1

REPORT INFORMATION
  Report Type: Report from Study
  Country: US (occurrence: US)
  Receive Date: 20190107
  Receipt Date: 20190107
  Transmission Date: 20190417
  Serious: Yes (Hospitalization)
  Sender: FDA-Public Use
  Company Number: US-BAXTER-2018BAX031493

PATIENT
  Age: 39 Year
  Sex: Male

DRUGS (13)
  1. PEGFILGRASTIM [Suspect]
     Active Substance: PEGFILGRASTIM
     Dosage: REGIMEN B (CYCLES 2, 4, 6, 8): CYCLE 2: ON DAY 4 UNTIL RECOVERY OF GRANULOCYTE COUNT
     Route: 058
  2. MESNA FOR INJECTION 1 GRAM [Suspect]
     Active Substance: MESNA
     Indication: PRODUCT USED FOR UNKNOWN INDICATION
     Dosage: REGIMEN A (CYCLES 1,3,5,7): CYCLE 1: DAILY OVER 24 HOURS FOR 3 DAYS ON DAYS 1-3
     Route: 042
  3. CYCLOPHOSPHAMIDE FOR INJECTION, USP [Suspect]
     Active Substance: CYCLOPHOSPHAMIDE
     Indication: PRODUCT USED FOR UNKNOWN INDICATION
     Dosage: REGIMEN A (CYCLES 1, 3, 5, 7): CYCLE 1: OVER 3 HOURS TWICE A DAY ON DAYS 1-3
     Route: 042
  4. INOTUZUMAB OZOGAMICIN [Suspect]
     Active Substance: INOTUZUMAB OZOGAMICIN
     Indication: ACUTE LYMPHOCYTIC LEUKAEMIA
     Dosage: (CMC-544) REGIMEN A (CYCLES 1, 3, 5, 7): CYCLE 1: OVER 1 HOUR ON DAY 3
     Route: 042
     Dates: start: 20181006, end: 20181006
  5. INOTUZUMAB OZOGAMICIN [Suspect]
     Active Substance: INOTUZUMAB OZOGAMICIN
     Dosage: LAST DOSE PRIOR TO SAE, (CMC-544) REGIMEN B (CYCLES 2, 4, 6, 8): CYCLE 2: ON DAY 2 OR 3 (CYCLES 2 AN
     Route: 042
  6. RITUXIMAB. [Suspect]
     Active Substance: RITUXIMAB
     Dosage: REGIMEN B (CYCLES 2, 4, 6, 8): CYCLE 2: ON DAY 2 AND DAY 8 (CYCLES 2 AND 4)
     Route: 042
  7. METHOTREXATE SODIUM. [Suspect]
     Active Substance: METHOTREXATE SODIUM
     Indication: PRODUCT USED FOR UNKNOWN INDICATION
     Dosage: REGIMEN B (CYCLES 2, 4, 6, 8): CYCLE 2: OVER 2HRS ON DAY 1
     Route: 042
  8. VINCRISTINE SULFATE. [Suspect]
     Active Substance: VINCRISTINE SULFATE
     Indication: PRODUCT USED FOR UNKNOWN INDICATION
     Dosage: REGIMEN A (CYCLES 1, 3, 5, 7): CYCLE 1: DAY 1 AND DAY 8
     Route: 042
  9. METHOTREXATE SODIUM. [Suspect]
     Active Substance: METHOTREXATE SODIUM
     Dosage: REGIMEN B (CYCLES 2, 4, 6, 8): CYCLE 2: CONTINUOUS INFUSION OVER 22 HOURS ON DAY 1
     Route: 042
  10. RITUXIMAB. [Suspect]
     Active Substance: RITUXIMAB
     Indication: PRODUCT USED FOR UNKNOWN INDICATION
     Dosage: REGIMEN A (CYCLES 1, 3, 5, 7): CYCLE 1: ON DAY 2 AND DAY 8 (CYCLES 1 AND 3 ONLY)
     Route: 042
  11. ARA-C [Suspect]
     Active Substance: CYTARABINE
     Indication: PRODUCT USED FOR UNKNOWN INDICATION
     Dosage: REGIMEN B (CYCLES 2, 4, 6, 8): CYCLE 2: OVER 3 HOURS TWICE A DAY X4 DOSES ON DAYS 2 AND 3
     Route: 042
  12. PEGFILGRASTIM [Suspect]
     Active Substance: PEGFILGRASTIM
     Indication: PRODUCT USED FOR UNKNOWN INDICATION
     Dosage: REGIMEN A (CYCLES 1, 3, 5, 7): CYCLE 1: ON DAY 4 UNTIL RECOVERY OF GRANULOCYTE COUNT
     Route: 058
  13. DEXAMETHASONE. [Suspect]
     Active Substance: DEXAMETHASONE
     Indication: PRODUCT USED FOR UNKNOWN INDICATION
     Dosage: REGIMEN A (CYCLES 1, 3, 5, 7): CYCLE 1: DAILY FOR 4 DAYS ON DAYS 1-4 AND 11-14
     Route: 042

REACTIONS (1)
  - Infusion related reaction [Recovered/Resolved]

NARRATIVE: CASE EVENT DATE: 20181124
